FAERS Safety Report 25433637 (Version 1)
Quarter: 2025Q2

REPORT INFORMATION
  Report Type: Spontaneous
  Country: US (occurrence: None)
  Receive Date: 20250613
  Receipt Date: 20250613
  Transmission Date: 20250716
  Serious: Yes (Hospitalization)
  Sender: FDA-CTU
  Company Number: None

PATIENT
  Age: 70 Year
  Sex: Male
  Weight: 62.2 kg

DRUGS (4)
  1. FLUOROURACIL [Suspect]
     Active Substance: FLUOROURACIL
     Dates: end: 20250424
  2. CAMPTOSAR [Suspect]
     Active Substance: IRINOTECAN HYDROCHLORIDE
     Dates: end: 20250422
  3. LEUCOVORIN CALCIUM [Suspect]
     Active Substance: LEUCOVORIN CALCIUM
     Dates: end: 20250422
  4. ELOXATIN [Concomitant]
     Active Substance: OXALIPLATIN
     Dates: end: 20250422

REACTIONS (14)
  - Nausea [None]
  - Decreased appetite [None]
  - Constipation [None]
  - Vomiting [None]
  - Fluid intake reduced [None]
  - Weight decreased [None]
  - Cough [None]
  - Confusional state [None]
  - Brain fog [None]
  - Pneumonia [None]
  - Aspiration [None]
  - Impaired gastric emptying [None]
  - Hyperglycaemia [None]
  - Klebsiella test positive [None]

NARRATIVE: CASE EVENT DATE: 20250601
